FAERS Safety Report 12123555 (Version 1)
Quarter: 2016Q1

REPORT INFORMATION
  Report Type: Spontaneous
  Country: US (occurrence: None)
  Receive Date: 20160226
  Receipt Date: 20160226
  Transmission Date: 20160526
  Serious: Yes (Hospitalization)
  Sender: FDA-Public Use
  Company Number: None

PATIENT
  Age: 29 Month
  Sex: Male
  Weight: 15 kg

DRUGS (1)
  1. PROPOFOL. [Suspect]
     Active Substance: PROPOFOL

REACTIONS (4)
  - Blood triglycerides increased [None]
  - Incorrect dose administered by device [None]
  - Device malfunction [None]
  - Apnoea [None]

NARRATIVE: CASE EVENT DATE: 20160211
